FAERS Safety Report 15196139 (Version 2)
Quarter: 2018Q3

REPORT INFORMATION
  Report Type: Spontaneous
  Country: FI (occurrence: FI)
  Receive Date: 20180725
  Receipt Date: 20180820
  Transmission Date: 20181010
  Serious: Yes (Hospitalization, Other)
  Sender: FDA-Public Use
  Company Number: PHHY2017FI204342

PATIENT
  Age: 30 Year
  Sex: Female

DRUGS (3)
  1. OLANZAPINE. [Suspect]
     Active Substance: OLANZAPINE
     Indication: BIPOLAR I DISORDER
     Dosage: 15 MG, QHS (AT NIGHT)
     Route: 065
  2. PANACOD [Interacting]
     Active Substance: ACETAMINOPHEN\CODEINE PHOSPHATE
     Indication: BACK PAIN
     Dosage: 1 UNK, QD
     Route: 065
     Dates: start: 2017
  3. LITHIUM. [Interacting]
     Active Substance: LITHIUM
     Indication: BIPOLAR DISORDER
     Dosage: 1050 MG, QD
     Route: 065

REACTIONS (8)
  - Mania [Recovered/Resolved]
  - Drug interaction [Unknown]
  - Weight increased [Unknown]
  - Drug ineffective [Unknown]
  - Intervertebral disc protrusion [Unknown]
  - Back pain [Unknown]
  - Intercepted drug prescribing error [Unknown]
  - Increased appetite [Unknown]

NARRATIVE: CASE EVENT DATE: 201705
